FAERS Safety Report 9183975 (Version 1)
Quarter: 2012Q4

REPORT INFORMATION
  Report Type: 
  Country: US (occurrence: US)
  Receive Date: 20121030
  Receipt Date: 20121030
  Transmission Date: 20130627
  Serious: Yes (Hospitalization)
  Sender: FDA-Public Use
  Company Number: US-AMGEN-USASP2012064506

PATIENT
  Age: 52 Year
  Sex: Female

DRUGS (1)
  1. ENBREL [Suspect]
     Indication: ANKYLOSING SPONDYLITIS
     Dosage: 50 mg, q2wk
     Dates: start: 20011101

REACTIONS (14)
  - Costochondritis [Unknown]
  - Headache [Not Recovered/Not Resolved]
  - Sinus congestion [Recovered/Resolved]
  - Intervertebral disc degeneration [Not Recovered/Not Resolved]
  - Respiratory tract congestion [Recovered/Resolved]
  - Meniscus injury [Unknown]
  - Atelectasis [Unknown]
  - Pleural effusion [Unknown]
  - Pulmonary congestion [Unknown]
  - Dizziness [Unknown]
  - Tremor [Unknown]
  - Paraesthesia [Not Recovered/Not Resolved]
  - Chest pain [Recovered/Resolved]
  - Nasopharyngitis [Recovered/Resolved]
